FAERS Safety Report 9518138 (Version 1)
Quarter: 2013Q1

REPORT INFORMATION
  Report Type: Spontaneous
  Country: US (occurrence: None)
  Receive Date: 20130305
  Receipt Date: 20130305
  Transmission Date: 20140127
  Serious: Yes (Other)
  Sender: FDA-Public Use
  Company Number: 163-21880-12021736

PATIENT
  Age: 64 Year
  Sex: Female
  Weight: 78.02 kg

DRUGS (20)
  1. REVLIMID (LENALIDOMIDE) (25 MILLIGRAM, CAPSULES) [Suspect]
     Indication: PLASMA CELL MYELOMA
     Dosage: 25 MG, 1 IN 1 D, PO
     Route: 048
     Dates: start: 200907
  2. VALACYCLOVIR (VALACICLOVIR HYDROCHLORIDE) (UNKNOWN) [Concomitant]
  3. METOPROLOL (METOPROLOL) (UNKNOWN) [Concomitant]
  4. ESTER-C (CALCIUM ASCORBATE) (UNKNOWN) [Concomitant]
  5. PRILOSEC (OMEPRAZOLE) (UNKNOWN) [Concomitant]
  6. CALTRATE (CALCIUM CARBONATE) (UNKNOWN) [Concomitant]
  7. LORATADINE (LORATADINE) (UNKNOWN) [Concomitant]
  8. AZITHROMYCIN (AZITHROMYCIN) (UNKNOWN) [Concomitant]
  9. DOXAZOSIN (DOXAZOSIN) (UNKNOWN)? [Concomitant]
  10. OMEPRAZOLE (OMEPRAZOLE) (UNKNOWN) [Concomitant]
  11. FLONASE (FLUTICASONE PROPIONATE) (UNKNOWN) [Concomitant]
  12. CRESTOR (ROSUVASTATIN) (UNKNOWN) [Concomitant]
  13. WARFARIN (WARFARIN) (UNKNOWN) [Concomitant]
  14. HYDROMET (ALDORIL) (UNKNOWN) [Concomitant]
  15. MULTIVITAMINS (MULTIVITAMINS) (UNKNOWN) [Concomitant]
  16. RANITIDINE (RANITIDINE) (UNKNOWN) [Concomitant]
  17. ASPIRIN (ACETYLSALICYLIC ACID) (UNKNOWN) (ACETYLSALICYLIC ACID) [Suspect]
  18. MUCINEX ER (GUAIFENESIN) (UNKNOWN) [Concomitant]
  19. FLAXSEE OIL (LENSEED OIL) (UNKNOWN) [Concomitant]
  20. FEOSOL (FERROUS SULFATE) (UNKNOWN) [Concomitant]

REACTIONS (1)
  - Osteoporosis [None]
